FAERS Safety Report 16738450 (Version 1)
Quarter: 2019Q3

REPORT INFORMATION
  Report Type: Spontaneous
  Country: AU (occurrence: AU)
  Receive Date: 20190826
  Receipt Date: 20190826
  Transmission Date: 20191005
  Serious: Yes (Other)
  Sender: FDA-Public Use
  Company Number: AU-BEH-2019106005

PATIENT
  Age: 85 Year

DRUGS (1)
  1. PRIVIGEN [Suspect]
     Active Substance: HUMAN IMMUNOGLOBULIN G
     Indication: INCLUSION BODY MYOSITIS
     Dosage: 35 GRAM OF 105G DISPENSED
     Route: 065
     Dates: start: 20190528

REACTIONS (4)
  - Product use in unapproved indication [Unknown]
  - Tachycardia [Unknown]
  - Chills [Unknown]
  - No adverse event [Unknown]

NARRATIVE: CASE EVENT DATE: 20190528
